FAERS Safety Report 5027011-X (Version None)
Quarter: 2006Q2

REPORT INFORMATION
  Report Type: 
  Country: None (occurrence: None)
  Receive Date: 20060612
  Receipt Date: 20060601
  Transmission Date: 20061013
  Serious: Yes (Death)
  Sender: FDA-Public Use
  Company Number: 2006BI006911

PATIENT
  Age: 45 Year
  Sex: Male

DRUGS (4)
  1. AVONEX [Suspect]
     Indication: MULTIPLE SCLEROSIS
     Dosage: 30 UG; QW; IM
     Route: 030
     Dates: start: 20050301
  2. ZANAFLEX [Concomitant]
  3. TYLENOL (CAPLET) [Concomitant]
  4. ZANTAC [Concomitant]

REACTIONS (1)
  - ROAD TRAFFIC ACCIDENT [None]
